FAERS Safety Report 21027974 (Version 1)
Quarter: 2022Q2

REPORT INFORMATION
  Report Type: Spontaneous
  Country: US (occurrence: US)
  Receive Date: 20220630
  Receipt Date: 20220630
  Transmission Date: 20220720
  Serious: No
  Sender: FDA-Public Use
  Company Number: US-SA-SAC20220629000107

PATIENT
  Sex: Female

DRUGS (7)
  1. KEVZARA [Suspect]
     Active Substance: SARILUMAB
     Indication: Emphysema
     Dosage: 200 MG, QOW
     Route: 058
  2. KEVZARA [Suspect]
     Active Substance: SARILUMAB
     Indication: Rheumatoid arthritis
  3. KEVZARA [Suspect]
     Active Substance: SARILUMAB
     Indication: Gout
  4. KEVZARA [Suspect]
     Active Substance: SARILUMAB
     Indication: Spinal osteoarthritis
  5. KEVZARA [Suspect]
     Active Substance: SARILUMAB
     Indication: Back pain
  6. XELJANZ [Concomitant]
     Active Substance: TOFACITINIB CITRATE
     Indication: Gastric disorder
     Dosage: 5 MG, QD
  7. HYDROCODONE [Concomitant]
     Active Substance: HYDROCODONE
     Indication: Pain
     Dosage: UNK

REACTIONS (9)
  - Gastric disorder [Unknown]
  - Constipation [Unknown]
  - Asthenia [Unknown]
  - Fatigue [Unknown]
  - Abdominal discomfort [Unknown]
  - Malaise [Unknown]
  - Stress [Unknown]
  - Pain [Unknown]
  - Product use in unapproved indication [Unknown]
